FAERS Safety Report 7352505-1 (Version None)
Quarter: 2011Q1

REPORT INFORMATION
  Report Type: 
  Country: None (occurrence: None)
  Receive Date: 20110315
  Receipt Date: 20110310
  Transmission Date: 20110831
  Serious: Yes (Other)
  Sender: FDA-Public Use
  Company Number: GB-PFIZER INC-2011053867

PATIENT
  Age: 74 Year
  Sex: Male
  Weight: 76.4 kg

DRUGS (1)
  1. TAZOCIN [Suspect]
     Indication: NOSOCOMIAL INFECTION
     Dosage: 4.5 G, UNK
     Route: 042
     Dates: start: 20110227, end: 20110302

REACTIONS (1)
  - LIVER INJURY [None]
